FAERS Safety Report 24612709 (Version 4)
Quarter: 2025Q1

REPORT INFORMATION
  Report Type: Spontaneous
  Country: FR (occurrence: FR)
  Receive Date: 20241113
  Receipt Date: 20250128
  Transmission Date: 20250409
  Serious: Yes (Hospitalization, Other)
  Sender: NOVARTIS
  Company Number: None

PATIENT
  Age: 58 Year
  Sex: Male

DRUGS (2)
  1. COSENTYX [Suspect]
     Active Substance: SECUKINUMAB
     Indication: Arthralgia
     Route: 058
     Dates: start: 20240501, end: 20241019
  2. COSENTYX [Suspect]
     Active Substance: SECUKINUMAB
     Indication: Psoriatic arthropathy

REACTIONS (6)
  - Paraesthesia [Recovering/Resolving]
  - Hyperaesthesia [Recovering/Resolving]
  - Facial paralysis [Recovering/Resolving]
  - Carpal tunnel syndrome [Recovering/Resolving]
  - Polyneuropathy [Recovering/Resolving]
  - Sinusitis [Unknown]

NARRATIVE: CASE EVENT DATE: 20240801
